FAERS Safety Report 6793463-8 (Version None)
Quarter: 2010Q2

REPORT INFORMATION
  Report Type: 
  Country: None (occurrence: None)
  Receive Date: 20100624
  Receipt Date: 20100507
  Transmission Date: 20101027
  Serious: Yes (Death)
  Sender: FDA-Public Use
  Company Number: US-MYLANLABS-2010S1005043

PATIENT
  Age: 73 Year
  Sex: Male

DRUGS (3)
  1. CLOZAPINE [Suspect]
     Indication: PARKINSON'S DISEASE
     Route: 048
     Dates: start: 20070515
  2. LEVAQUIN [Concomitant]
     Dates: start: 20100120
  3. DOCUSATE [Concomitant]
     Dates: start: 20091101

REACTIONS (3)
  - PARKINSON'S DISEASE [None]
  - PNEUMONIA ASPIRATION [None]
  - RESPIRATORY FAILURE [None]
